FAERS Safety Report 8236828-X (Version None)
Quarter: 2012Q1

REPORT INFORMATION
  Report Type: 
  Country: None (occurrence: None)
  Receive Date: 20120327
  Receipt Date: 20120322
  Transmission Date: 20120608
  Serious: Yes (Hospitalization)
  Sender: FDA-Public Use
  Company Number: IT-PFIZER INC-2012074770

PATIENT
  Age: 29 Year
  Sex: Female

DRUGS (1)
  1. DOSTINEX [Suspect]
     Indication: SUPPRESSED LACTATION
     Dosage: 1 MG DAILY
     Route: 048
     Dates: start: 20120306, end: 20120307

REACTIONS (4)
  - URTICARIA [None]
  - VERTIGO [None]
  - DYSPHONIA [None]
  - DYSPNOEA [None]
